FAERS Safety Report 13700319 (Version 4)
Quarter: 2018Q3

REPORT INFORMATION
  Report Type: Report from Study
  Country: None (occurrence: US)
  Receive Date: 20170629
  Receipt Date: 20180827
  Transmission Date: 20181010
  Serious: Yes (Hospitalization)
  Sender: FDA-Public Use
  Company Number: US-ABBVIE-17K-163-1979042-00

PATIENT
  Age: 25 Year
  Sex: Female

DRUGS (2)
  1. HUMIRA [Suspect]
     Active Substance: ADALIMUMAB
     Indication: CROHN^S DISEASE
     Route: 058
     Dates: start: 20160523, end: 2017
  2. HUMIRA [Suspect]
     Active Substance: ADALIMUMAB
     Route: 058
     Dates: start: 2017

REACTIONS (12)
  - Temperature intolerance [Unknown]
  - Injection site swelling [Not Recovered/Not Resolved]
  - Gastrointestinal inflammation [Unknown]
  - Stress [Unknown]
  - Dehydration [Unknown]
  - Hepatic enzyme increased [Unknown]
  - Injection site bruising [Not Recovered/Not Resolved]
  - Crohn^s disease [Unknown]
  - Crohn^s disease [Recovered/Resolved]
  - Drug ineffective [Recovering/Resolving]
  - Intestinal obstruction [Unknown]
  - Crohn^s disease [Recovered/Resolved]

NARRATIVE: CASE EVENT DATE: 201705
